FAERS Safety Report 9184555 (Version 2)
Quarter: 2013Q2

REPORT INFORMATION
  Report Type: Spontaneous
  Country: US (occurrence: US)
  Receive Date: 20130322
  Receipt Date: 20130409
  Transmission Date: 20140414
  Serious: Yes (Hospitalization, Other)
  Sender: FDA-Public Use
  Company Number: US-PFIZER INC-2013090821

PATIENT
  Age: 96 Year
  Sex: Female

DRUGS (2)
  1. NEURONTIN [Suspect]
     Dosage: 2400 MG/DAY
     Dates: start: 2003
  2. NEURONTIN [Suspect]
     Dosage: 600 MG, 2X/DAY
     Dates: start: 2012

REACTIONS (16)
  - Fall [Unknown]
  - Hip fracture [Unknown]
  - Sternal fracture [Unknown]
  - Withdrawal syndrome [Unknown]
  - Tremor [Unknown]
  - Hypopnoea [Unknown]
  - Somnolence [Unknown]
  - Pain [Unknown]
  - Hyperhidrosis [Unknown]
  - Fatigue [Unknown]
  - Restlessness [Unknown]
  - Chest pain [Unknown]
  - Dyspepsia [Unknown]
  - Cough [Unknown]
  - Muscle spasms [Unknown]
  - Hot flush [Unknown]
